FAERS Safety Report 8589977-0 (Version None)
Quarter: 2012Q3

REPORT INFORMATION
  Report Type: 
  Country: None (occurrence: None)
  Receive Date: 20120813
  Receipt Date: 20120806
  Transmission Date: 20120928
  Serious: Yes (Other)
  Sender: FDA-Public Use
  Company Number: US-BAYER-2012-042458

PATIENT
  Age: 45 Year
  Sex: Male
  Weight: 90.249 kg

DRUGS (6)
  1. MECLIZINE [Concomitant]
     Indication: VERTIGO
     Dosage: 25 MG, BID
     Dates: start: 20111207
  2. CITALOPRAM [Concomitant]
     Indication: DEPRESSION
     Dosage: 20 MG, QD
     Dates: start: 20120725
  3. LORTAB [Concomitant]
     Indication: PAIN
     Dosage: 2.5/500 MG, TID PRN
     Dates: start: 20120206
  4. INTERFERON BETA-1B [Suspect]
     Indication: RELAPSING-REMITTING MULTIPLE SCLEROSIS
     Dosage: 8 MIU, QOD
     Route: 058
     Dates: start: 20120201, end: 20120101
  5. INTERFERON BETA-1B [Suspect]
     Dosage: 0.3 MG, QOD
     Route: 058
     Dates: start: 20120701
  6. NORTRIPTYLINE [Concomitant]
     Indication: HEADACHE
     Dosage: 25 MG, HS
     Dates: start: 20120206

REACTIONS (7)
  - HEADACHE [None]
  - INJECTION SITE MASS [None]
  - INJECTION SITE HAEMATOMA [None]
  - DEHYDRATION [None]
  - DIZZINESS [None]
  - BALANCE DISORDER [None]
  - VOMITING [None]
